FAERS Safety Report 4617876-5 (Version None)
Quarter: 2005Q1

REPORT INFORMATION
  Report Type: 
  Country: None (occurrence: None)
  Receive Date: 20050322
  Receipt Date: 20050314
  Transmission Date: 20050727
  Serious: Yes (Hospitalization, Other)
  Sender: FDA-Public Use
  Company Number: GBWYE430316FEB05

PATIENT
  Age: 28 Year
  Sex: Female

DRUGS (3)
  1. ANADIN ULTRA          (IBUPROFEN, CAPSULE, LIQUID FILLED) [Suspect]
     Dosage: 2 LIQUID CAPSULES
     Route: 048
  2. VENTOLIN         (SALBUTAMOL SULFATE) [Concomitant]
  3. UNSPECIFIED ANTIHISTAMINE       (UNSPECIFIED ANTIHISTAMINE) [Concomitant]

REACTIONS (1)
  - ANAPHYLACTIC SHOCK [None]
